FAERS Safety Report 23873511 (Version 1)
Quarter: 2024Q2

REPORT INFORMATION
  Report Type: Spontaneous
  Country: PL (occurrence: None)
  Receive Date: 20240520
  Receipt Date: 20240520
  Transmission Date: 20240715
  Serious: Yes (Death)
  Sender: FDA-Public Use
  Company Number: 2024A116741

PATIENT
  Sex: Female

DRUGS (1)
  1. DURVALUMAB [Suspect]
     Active Substance: DURVALUMAB
     Indication: Drug therapy
     Route: 042

REACTIONS (12)
  - Adrenal gland cancer metastatic [Fatal]
  - Malignant neoplasm progression [Fatal]
  - Nausea [Unknown]
  - Oesophageal pain [Unknown]
  - Abdominal pain [Unknown]
  - Constipation [Unknown]
  - Hypertension [Unknown]
  - Cough [Recovered/Resolved]
  - Dyspnoea [Recovered/Resolved]
  - Productive cough [Recovered/Resolved]
  - Wheezing [Recovered/Resolved]
  - Gastrointestinal disorder [Unknown]

NARRATIVE: CASE EVENT DATE: 20210524
